FAERS Safety Report 23703833 (Version 1)
Quarter: 2024Q2

REPORT INFORMATION
  Report Type: Spontaneous
  Country: US (occurrence: US)
  Receive Date: 20240403
  Receipt Date: 20240403
  Transmission Date: 20240716
  Serious: No
  Sender: FDA-Public Use
  Company Number: US-PFIZER INC-202400032933

PATIENT
  Age: 34 Year
  Sex: Female

DRUGS (3)
  1. CIBINQO [Suspect]
     Active Substance: ABROCITINIB
     Indication: Dermatitis atopic
     Dosage: 100 MG, ALTERNATE DAY (EVERY OTHER DAY FOR 1 MONTH)
  2. CIBINQO [Suspect]
     Active Substance: ABROCITINIB
     Indication: Xerosis
  3. CIBINQO [Suspect]
     Active Substance: ABROCITINIB
     Indication: Pruritus

REACTIONS (2)
  - Blood test abnormal [Unknown]
  - Off label use [Unknown]
